FAERS Safety Report 9574635 (Version 2)
Quarter: 2013Q4

REPORT INFORMATION
  Report Type: Spontaneous
  Country: US (occurrence: US)
  Receive Date: 20131001
  Receipt Date: 20131001
  Transmission Date: 20140711
  Serious: No
  Sender: FDA-Public Use
  Company Number: US-PURDUE-USA-2012-0083680

PATIENT
  Age: 29 Year
  Sex: Female
  Weight: 90.7 kg

DRUGS (3)
  1. BUTRANS [Suspect]
     Indication: PAIN MANAGEMENT
     Dosage: 20 MCG/HR, UNK
     Route: 062
     Dates: start: 201201, end: 201204
  2. CYMBALTA [Concomitant]
     Indication: PRODUCT USED FOR UNKNOWN INDICATION
     Dosage: 30 MG, TID
  3. OXYCODONE HCL IR CAPSULES [Concomitant]
     Indication: PRODUCT USED FOR UNKNOWN INDICATION
     Dosage: 15 MG, TID

REACTIONS (4)
  - Application site pain [Unknown]
  - Application site pruritus [Unknown]
  - Application site erythema [Recovered/Resolved]
  - Application site discomfort [Recovered/Resolved]
